FAERS Safety Report 4645433-3 (Version None)
Quarter: 2005Q2

REPORT INFORMATION
  Report Type: 
  Country: None (occurrence: None)
  Receive Date: 20050331
  Receipt Date: 20050209
  Transmission Date: 20051028
  Serious: Yes (Hospitalization)
  Sender: FDA-Public Use
  Company Number: 05P-163-0290046-00

PATIENT
  Age: 77 Year
  Sex: Female

DRUGS (12)
  1. HUMIRA [Suspect]
     Indication: RHEUMATOID ARTHRITIS
     Dosage: 40 MG, 1 IN 2 WK, SUBCUTANEOUS
     Route: 058
     Dates: start: 20040105, end: 20040201
  2. HUMIRA [Suspect]
     Indication: RHEUMATOID ARTHRITIS
     Dosage: 40 MG, 1 IN 2 WK, SUBCUTANEOUS
     Route: 058
     Dates: start: 20040101, end: 20041105
  3. ASCORBIC ACID [Concomitant]
  4. ATENOLOL [Concomitant]
  5. MULTI-VITAMINS [Concomitant]
  6. CALCIUM CARBONATE [Concomitant]
  7. VICODIN [Concomitant]
  8. LEFLUNOMIDE [Concomitant]
  9. METHYLPREDNISOLONE [Concomitant]
  10. PREDNISONE TAB [Concomitant]
  11. EPOETIN ALFA [Concomitant]
  12. LOMOTIL [Concomitant]

REACTIONS (3)
  - BLOOD POTASSIUM DECREASED [None]
  - MENINGITIS VIRAL [None]
  - SKIN ULCER [None]
